FAERS Safety Report 9693497 (Version 1)
Quarter: 2013Q4

REPORT INFORMATION
  Report Type: Spontaneous
  Country: DE (occurrence: DE)
  Receive Date: 20131118
  Receipt Date: 20131118
  Transmission Date: 20140711
  Serious: Yes (Death, Other)
  Sender: FDA-Public Use
  Company Number: DE-INCYTE CORPORATION-2013IN002705

PATIENT
  Sex: 0

DRUGS (1)
  1. INC424 [Suspect]
     Indication: MYELOFIBROSIS
     Dosage: UNK, UNK, UNK

REACTIONS (2)
  - Hepatotoxicity [Fatal]
  - Myelofibrosis [Unknown]
